FAERS Safety Report 8210764-7 (Version None)
Quarter: 2012Q1

REPORT INFORMATION
  Report Type: 
  Country: None (occurrence: None)
  Receive Date: 20120315
  Receipt Date: 20120312
  Transmission Date: 20120608
  Serious: No
  Sender: FDA-Public Use
  Company Number: US-BIOGENIDEC-2010BI020352

PATIENT
  Age: 23 Year
  Sex: Female

DRUGS (2)
  1. TYSABRI [Suspect]
     Indication: MULTIPLE SCLEROSIS
     Route: 042
     Dates: start: 20100322
  2. AVONEX [Concomitant]
     Indication: MULTIPLE SCLEROSIS
     Route: 030

REACTIONS (12)
  - PAIN [None]
  - NAUSEA [None]
  - DIZZINESS [None]
  - HYPERTENSION [None]
  - GAIT DISTURBANCE [None]
  - HEART RATE INCREASED [None]
  - PERSONALITY CHANGE [None]
  - HYPOTONIA [None]
  - EMOTIONAL DISORDER [None]
  - TEMPERATURE INTOLERANCE [None]
  - HEADACHE [None]
  - FATIGUE [None]
